FAERS Safety Report 13159501 (Version 2)
Quarter: 2017Q1

REPORT INFORMATION
  Report Type: Spontaneous
  Country: US (occurrence: US)
  Receive Date: 20170127
  Receipt Date: 20170203
  Transmission Date: 20170428
  Serious: No
  Sender: FDA-Public Use
  Company Number: US-PFIZER INC-2017030073

PATIENT
  Age: 47 Year
  Sex: Female

DRUGS (1)
  1. EFFEXOR XR [Suspect]
     Active Substance: VENLAFAXINE HYDROCHLORIDE
     Indication: HOT FLUSH
     Dosage: 150 MG, UNK

REACTIONS (5)
  - Withdrawal syndrome [Unknown]
  - Product use issue [Unknown]
  - Drug dose omission [Unknown]
  - Vertigo [Unknown]
  - Dizziness [Unknown]
